FAERS Safety Report 21747515 (Version 1)
Quarter: 2022Q4

REPORT INFORMATION
  Report Type: Spontaneous
  Country: US (occurrence: US)
  Receive Date: 20221219
  Receipt Date: 20221219
  Transmission Date: 20230113
  Serious: No
  Sender: FDA-Public Use
  Company Number: US-NOVEN PHARMACEUTICALS, INC.-2022-NOV-US000249

PATIENT
  Age: 17 Year
  Sex: Female

DRUGS (3)
  1. MINIVELLE [Suspect]
     Active Substance: ESTRADIOL
     Indication: Trans-sexualism
     Dosage: 0.1 MG, 2 PATCHES TWICE WEEKLY
     Route: 062
     Dates: start: 202202
  2. MINIVELLE [Suspect]
     Active Substance: ESTRADIOL
     Indication: Off label use
     Dosage: 0.1 MG, UNKNOWN
     Route: 062
     Dates: start: 202112, end: 202202
  3. FLUOXETINE [Concomitant]
     Active Substance: FLUOXETINE HYDROCHLORIDE
     Indication: Product used for unknown indication
     Dosage: UNK
     Route: 065

REACTIONS (7)
  - Blood testosterone abnormal [Unknown]
  - Blood oestrogen abnormal [Not Recovered/Not Resolved]
  - Menopausal symptoms [Not Recovered/Not Resolved]
  - Device issue [Not Recovered/Not Resolved]
  - Device adhesion issue [Not Recovered/Not Resolved]
  - Product adhesion issue [Not Recovered/Not Resolved]
  - Off label use [Not Recovered/Not Resolved]

NARRATIVE: CASE EVENT DATE: 20211201
